FAERS Safety Report 7100196-7 (Version None)
Quarter: 2010Q4

REPORT INFORMATION
  Report Type: 
  Country: None (occurrence: None)
  Receive Date: 20101112
  Receipt Date: 20101109
  Transmission Date: 20110411
  Serious: Yes (Hospitalization)
  Sender: FDA-Public Use
  Company Number: IT-PFIZER INC-2010139896

PATIENT
  Age: 77 Year
  Sex: Female

DRUGS (11)
  1. LYRICA [Suspect]
     Indication: NEURALGIA
     Dosage: 100 MG
     Route: 048
     Dates: start: 20100719, end: 20100801
  2. ACYCLOVIR [Suspect]
     Indication: HERPES ZOSTER
     Dosage: 4000 MG, 1X/DAY
     Route: 048
     Dates: start: 20100719, end: 20100801
  3. FUROSEMIDE [Suspect]
     Indication: MYOCARDIAL ISCHAEMIA
     Dosage: 12.5 MG, 1X/DAY
     Route: 048
     Dates: start: 20090101, end: 20100801
  4. FENTANYL [Suspect]
     Indication: BONE PAIN
     Dosage: 1 UNIT EVERY 72 HOURS
     Route: 062
     Dates: start: 20090101, end: 20090101
  5. PLAUNAC [Suspect]
     Indication: HYPERTENSION
     Dosage: 20 MG, 1X/DAY
     Route: 048
     Dates: start: 20090101, end: 20100801
  6. WARFARIN SODIUM [Concomitant]
     Route: 048
  7. PANTOPRAZOLE [Concomitant]
     Route: 048
  8. THEO-DUR [Concomitant]
     Route: 048
  9. ALLOPURINOL [Concomitant]
     Route: 048
  10. NEURABEN [Concomitant]
     Route: 048
  11. ARIMIDEX [Concomitant]
     Route: 048

REACTIONS (4)
  - MULTIPLE DRUG OVERDOSE [None]
  - OXYGEN SATURATION DECREASED [None]
  - RENAL FAILURE ACUTE [None]
  - SOPOR [None]
